FAERS Safety Report 16058486 (Version 1)
Quarter: 2019Q1

REPORT INFORMATION
  Report Type: Spontaneous
  Country: US (occurrence: US)
  Receive Date: 20190311
  Receipt Date: 20190311
  Transmission Date: 20190418
  Serious: No
  Sender: FDA-Public Use
  Company Number: US-EMD SERONO-9074678

PATIENT
  Age: 17 Year
  Sex: Male
  Weight: 50 kg

DRUGS (2)
  1. SAIZEN [Suspect]
     Active Substance: SOMATROPIN
     Indication: GROWTH HORMONE DEFICIENCY
     Dosage: 90 DAYS 1 REFILL
     Route: 058
  2. SAIZEN [Suspect]
     Active Substance: SOMATROPIN
     Indication: DELAYED PUBERTY

REACTIONS (5)
  - White blood cell count decreased [Unknown]
  - Upper respiratory tract infection [Unknown]
  - Product dose omission [Unknown]
  - Neutrophil count decreased [Unknown]
  - Decreased appetite [Unknown]
